FAERS Safety Report 12563220 (Version 1)
Quarter: 2016Q3

REPORT INFORMATION
  Report Type: Spontaneous
  Country: CN (occurrence: CN)
  Receive Date: 20160715
  Receipt Date: 20160715
  Transmission Date: 20161109
  Serious: Yes (Other)
  Sender: FDA-Public Use
  Company Number: CN-PFIZER INC-2016340794

PATIENT
  Age: 75 Year
  Sex: Male
  Weight: 60 kg

DRUGS (4)
  1. LIPITOR [Suspect]
     Active Substance: ATORVASTATIN CALCIUM
     Indication: LIPIDS
  2. TALCOM [Suspect]
     Active Substance: CLOPIDOGREL BISULFATE
     Indication: COAGULOPATHY
     Dosage: 50 MG, 1X/DAY
     Route: 048
     Dates: start: 20160310, end: 20160314
  3. LIPITOR [Suspect]
     Active Substance: ATORVASTATIN CALCIUM
     Indication: CARDIAC FAILURE
     Dosage: 20 MG, 1X/DAY
     Route: 048
     Dates: start: 20160310, end: 20160314
  4. RUI BO TE [Suspect]
     Active Substance: RABEPRAZOLE SODIUM
     Indication: PROPHYLAXIS
     Dosage: 10 MG, 1X/DAY
     Route: 048
     Dates: start: 20160310, end: 20160313

REACTIONS (4)
  - Somnolence [Recovering/Resolving]
  - Hallucination [Recovering/Resolving]
  - Abdominal pain upper [Recovering/Resolving]
  - Chest pain [Recovering/Resolving]

NARRATIVE: CASE EVENT DATE: 20160311
